FAERS Safety Report 9769194 (Version 2)
Quarter: 2014Q1

REPORT INFORMATION
  Report Type: Spontaneous
  Country: FR (occurrence: FR)
  Receive Date: 20131218
  Receipt Date: 20140107
  Transmission Date: 20141002
  Serious: Yes (Hospitalization)
  Sender: FDA-Public Use
  Company Number: FR-009507513-1312FRA003773

PATIENT
  Age: 34 Year
  Sex: Male

DRUGS (2)
  1. TIENAM 500MG/500MG, POUDRE POUR PERFUSION [Suspect]
     Indication: BACTERIAL INFECTION
     Dosage: 1 G, TID
     Route: 048
     Dates: start: 20131030
  2. ACUPAN [Suspect]
     Dosage: UNK, ONCE
     Route: 048
     Dates: start: 20131107, end: 20131107

REACTIONS (1)
  - Neuropsychiatric syndrome [Recovering/Resolving]
